FAERS Safety Report 5507274-4 (Version None)
Quarter: 2007Q4

REPORT INFORMATION
  Report Type: 
  Country: None (occurrence: None)
  Receive Date: 20071106
  Receipt Date: 20071029
  Transmission Date: 20080405
  Serious: Yes (Hospitalization)
  Sender: FDA-Public Use
  Company Number: PHEH2007US14312

PATIENT
  Age: 78 Year
  Sex: Female
  Weight: 66.213 kg

DRUGS (1)
  1. ESIDRIX [Suspect]
     Dosage: 25 MG, QD
     Route: 048

REACTIONS (2)
  - BLOOD SODIUM DECREASED [None]
  - FATIGUE [None]
